FAERS Safety Report 6413002-0 (Version None)
Quarter: 2009Q4

REPORT INFORMATION
  Report Type: 
  Country: None (occurrence: None)
  Receive Date: 20091026
  Receipt Date: 20091021
  Transmission Date: 20100525
  Serious: Yes (Hospitalization, Other)
  Sender: FDA-Public Use
  Company Number: US-ASTRAZENECA-2007UW14370

PATIENT
  Age: 19179 Day
  Sex: Male
  Weight: 111.9 kg

DRUGS (9)
  1. SEROQUEL [Suspect]
     Indication: DEPRESSION
     Route: 048
     Dates: start: 20020905, end: 20060501
  2. SEROQUEL [Suspect]
     Dosage: 300 MG TAKE ONE TABLET BY MOUTH AT BEDTIME
     Route: 048
     Dates: start: 20040317
  3. ZYPREXA [Concomitant]
     Dates: start: 20001101
  4. MIRTAZAPINE [Concomitant]
     Dosage: 30 MG, TAKE ONE TABLET BY MOUTH AT BEDTIME
     Route: 048
     Dates: start: 20060215
  5. LORATADINE [Concomitant]
     Dosage: 10 MG, TAKE ONE TABLET BY MOUTH EVERY DAY
     Dates: start: 20060215
  6. OMEPRAZOLE [Concomitant]
     Dosage: 20 MG , TAKE ONE CAPSULE BY MOUTH EVERY DAY
     Route: 048
     Dates: start: 20050717
  7. GLIPIZIDE [Concomitant]
     Dates: start: 20060720
  8. METFORMIN [Concomitant]
     Dates: start: 20060720
  9. SERTRALINE HCL [Concomitant]

REACTIONS (3)
  - KNEE ARTHROPLASTY [None]
  - NEUROPATHY PERIPHERAL [None]
  - TYPE 2 DIABETES MELLITUS [None]
